FAERS Safety Report 13025477 (Version 1)
Quarter: 2016Q4

REPORT INFORMATION
  Report Type: Spontaneous
  Country: GB (occurrence: GB)
  Receive Date: 20161214
  Receipt Date: 20161214
  Transmission Date: 20170207
  Serious: Yes (Other)
  Sender: FDA-Public Use
  Company Number: GB-ACCORD-046340

PATIENT
  Age: 30 Year
  Sex: Female
  Weight: 63 kg

DRUGS (6)
  1. IBUPROFEN. [Concomitant]
     Active Substance: IBUPROFEN
  2. FRAGMIN [Concomitant]
     Active Substance: DALTEPARIN SODIUM
  3. SERTRALINE [Suspect]
     Active Substance: SERTRALINE HYDROCHLORIDE
     Indication: DEPRESSION
     Route: 048
     Dates: start: 20160929
  4. PARACETAMOL [Concomitant]
     Active Substance: ACETAMINOPHEN
  5. CODEINE [Concomitant]
     Active Substance: CODEINE
  6. MIRTAZAPINE. [Concomitant]
     Active Substance: MIRTAZAPINE

REACTIONS (6)
  - Insomnia [Recovered/Resolved]
  - Libido decreased [Not Recovered/Not Resolved]
  - Anorgasmia [Not Recovered/Not Resolved]
  - Nausea [Recovered/Resolved]
  - Dizziness [Recovered/Resolved]
  - Decreased appetite [Recovered/Resolved]

NARRATIVE: CASE EVENT DATE: 20161006
